FAERS Safety Report 5566077-5 (Version None)
Quarter: 2007Q4

REPORT INFORMATION
  Report Type: 
  Country: None (occurrence: None)
  Receive Date: 20071219
  Receipt Date: 20070423
  Transmission Date: 20080405
  Serious: No
  Sender: FDA-Public Use
  Company Number: US-KINGPHARMUSA00001-K200700509

PATIENT

DRUGS (1)
  1. APLISOL [Suspect]
     Dosage: .1 ML, 8 TIMES
     Route: 030
     Dates: start: 20070423, end: 20070423

REACTIONS (2)
  - INCORRECT ROUTE OF DRUG ADMINISTRATION [None]
  - WRONG DRUG ADMINISTERED [None]
